FAERS Safety Report 9059770 (Version 2)
Quarter: 2013Q2

REPORT INFORMATION
  Report Type: Report from Study
  Country: ES (occurrence: ES)
  Receive Date: 20130211
  Receipt Date: 20130425
  Transmission Date: 20140414
  Serious: Yes (Life-Threatening, Hospitalization, Other)
  Sender: FDA-Public Use
  Company Number: ES-OTSUKA-EU-2012-10275

PATIENT
  Sex: Male
  Weight: 95 kg

DRUGS (12)
  1. SAMSCA [Suspect]
     Indication: INAPPROPRIATE ANTIDIURETIC HORMONE SECRETION
     Dosage: 15 MG MILLIGRAM(S), DAILY DOSE
     Route: 048
     Dates: start: 20120630, end: 20120702
  2. SAMSCA [Suspect]
     Dosage: 15 MG MILLIGRAM(S), DAILY DOSE
     Route: 048
     Dates: start: 20121027, end: 20121028
  3. KEPPRA [Concomitant]
     Indication: EPILEPSY
     Dosage: 1000 MG MILLIGRAM(S), Q12HR
     Route: 048
  4. TRILEPTAL [Concomitant]
     Indication: EPILEPSY
     Dosage: 1800 MG MILLIGRAM(S), DAILY DOSE
     Route: 048
     Dates: start: 2006
  5. NOIAFREN [Concomitant]
     Indication: EPILEPSY
     Dosage: 20 MG MILLIGRAM(S), DAILY DOSE
     Route: 042
     Dates: start: 200610
  6. ALDOCUMAR [Concomitant]
     Indication: ANTICOAGULANT THERAPY
     Dosage: 2.5 MG MILLIGRAM(S), UNK
     Route: 048
     Dates: start: 2009
  7. BISOPROLOL [Concomitant]
     Indication: HYPERTENSION
     Dosage: 10 MG MILLIGRAM(S), DAILY DOSE
     Route: 042
     Dates: start: 200610
  8. DEXAMETASONA [Concomitant]
     Indication: BRAIN OEDEMA
     Dosage: 4 MG MILLIGRAM(S), DAILY DOSE
     Route: 048
     Dates: start: 20120612
  9. ALPRAZOLAM [Concomitant]
     Indication: ANXIOLYTIC THERAPY
     Dosage: 1 MG MILLIGRAM(S), DAILY DOSE
     Route: 048
     Dates: start: 200610
  10. OMEPRAZOL [Concomitant]
     Indication: PROPHYLAXIS AGAINST GASTROINTESTINAL ULCER
     Dosage: 20 MG MILLIGRAM(S), DAILY DOSE
     Route: 048
     Dates: start: 2009
  11. AMOXICILLIN CLAVULANIC ACID [Concomitant]
     Indication: URINARY TRACT INFECTION
     Dosage: 2625 MG MILLIGRAM(S), DAILY DOSE
     Route: 048
     Dates: start: 20120620, end: 20120630
  12. PIPERACILINA Y TAZOBACTAM [Concomitant]
     Indication: URINARY TRACT INFECTION
     Dosage: 12 MG MILLIGRAM(S), DAILY DOSE
     Route: 042
     Dates: start: 20120619, end: 20120701

REACTIONS (3)
  - Rapid correction of hyponatraemia [Recovered/Resolved]
  - Rapid correction of hyponatraemia [Recovered/Resolved]
  - Hyponatraemia [Recovering/Resolving]
